FAERS Safety Report 7761728-9 (Version None)
Quarter: 2011Q3

REPORT INFORMATION
  Report Type: 
  Country: None (occurrence: None)
  Receive Date: 20110920
  Receipt Date: 20110912
  Transmission Date: 20111222
  Serious: Yes (Other)
  Sender: FDA-Public Use
  Company Number: PHHY2008BR33494

PATIENT
  Sex: Female
  Weight: 60 kg

DRUGS (8)
  1. CALCIUM CARBONATE [Concomitant]
     Dosage: 1 DF, QD
     Route: 048
  2. TICLOPIDINE HCL [Concomitant]
     Indication: CEREBROVASCULAR ACCIDENT PROPHYLAXIS
     Dosage: 1 DF, QD
     Route: 048
     Dates: start: 20080501
  3. HYDROCHLOROTHIAZIDE [Concomitant]
     Indication: BLOOD PRESSURE INADEQUATELY CONTROLLED
     Dosage: 0.5 DF, TABLET DAILY
     Route: 048
  4. EXELON [Suspect]
     Dosage: 9 MG/5CM2 ONE PATCH DAILY
     Route: 062
  5. CARBAMAZEPINE [Concomitant]
     Indication: CONVULSION
     Dosage: 0.5 DF,
     Route: 048
  6. CAPTOPRIL [Concomitant]
     Indication: BLOOD PRESSURE
     Dosage: 25 MG, BID
     Route: 048
  7. FLUIMUCIL [Concomitant]
     Indication: INCREASED VISCOSITY OF BRONCHIAL SECRETION
     Dosage: 200 MG,
     Route: 048
  8. EXELON [Suspect]
     Indication: DEMENTIA ALZHEIMER'S TYPE
     Dosage: 9 MG/24H, 1 PATCH DAILY
     Route: 062
     Dates: start: 20080521

REACTIONS (9)
  - DERMATITIS ALLERGIC [None]
  - PRURITUS [None]
  - COUGH [None]
  - BLOOD PRESSURE SYSTOLIC INCREASED [None]
  - FEMUR FRACTURE [None]
  - DEPRESSED MOOD [None]
  - SKIN EXFOLIATION [None]
  - PSEUDARTHROSIS [None]
  - BLOOD PRESSURE DECREASED [None]
